FAERS Safety Report 21111396 (Version 2)
Quarter: 2022Q3

REPORT INFORMATION
  Report Type: Spontaneous
  Country: SE (occurrence: SE)
  Receive Date: 20220721
  Receipt Date: 20220912
  Transmission Date: 20221027
  Serious: Yes (Life-Threatening, Hospitalization, Other)
  Sender: FDA-Public Use
  Company Number: US-HARMONY BIOSCIENCES-2022HMY01370

PATIENT
  Age: 24 Year
  Sex: Male
  Weight: 84 kg

DRUGS (6)
  1. WAKIX [Suspect]
     Active Substance: PITOLISANT HYDROCHLORIDE
     Indication: Narcolepsy
     Dosage: 18 MG (17.8 MG), 1X/DAY
     Route: 048
     Dates: start: 20180927, end: 2022
  2. AMPHETAMINE [Concomitant]
     Active Substance: AMPHETAMINE
     Dosage: 5 MG, 2-3 TIMES DAILY
     Route: 048
     Dates: start: 20131015, end: 20220714
  3. LISDEXAMFETAMINE DIMESYLATE [Concomitant]
     Active Substance: LISDEXAMFETAMINE DIMESYLATE
     Dosage: 30 MG, 2X/DAY
     Route: 048
     Dates: start: 20141203
  4. SODIUM OXYBATE [Concomitant]
     Active Substance: SODIUM OXYBATE
     Dosage: 4 G, 2X/DAY NIGHTLY
     Route: 048
     Dates: start: 20140317
  5. ESCITALOPRAM [Concomitant]
     Active Substance: ESCITALOPRAM OXALATE
     Dosage: 10 MG, 2X/DAY
     Dates: start: 20151120
  6. DESLORATADINE [Concomitant]
     Active Substance: DESLORATADINE
     Dosage: 5 MG, 1X/DAY FROM SPRING UNTIL AUTUMN EACH YEAR SINCE THE PATIENT WAS 8 YEARS OF AGE

REACTIONS (1)
  - Myocarditis [Not Recovered/Not Resolved]

NARRATIVE: CASE EVENT DATE: 20190929
